FAERS Safety Report 20633247 (Version 1)
Quarter: 2022Q1

REPORT INFORMATION
  Report Type: Spontaneous
  Country: DE (occurrence: DE)
  Receive Date: 20220324
  Receipt Date: 20220324
  Transmission Date: 20220424
  Serious: Yes (Other)
  Sender: FDA-Public Use
  Company Number: DE-TEVA-2022-DE-2018071

PATIENT
  Age: 90 Year
  Sex: Female

DRUGS (1)
  1. METOPROLOL TARTRATE [Suspect]
     Active Substance: METOPROLOL TARTRATE
     Route: 065
     Dates: start: 202201

REACTIONS (7)
  - Angina pectoris [Unknown]
  - Adverse event [Unknown]
  - Angular cheilitis [Unknown]
  - Ocular hyperaemia [Unknown]
  - Skin depigmentation [Unknown]
  - Product substitution issue [Unknown]
  - Drug intolerance [Unknown]

NARRATIVE: CASE EVENT DATE: 20220101
